FAERS Safety Report 8910816 (Version 2)
Quarter: 2013Q4

REPORT INFORMATION
  Report Type: Spontaneous
  Country: DK (occurrence: DK)
  Receive Date: 20121116
  Receipt Date: 20131009
  Transmission Date: 20140711
  Serious: Yes (Hospitalization)
  Sender: FDA-Public Use
  Company Number: DK-PFIZER INC-2012284639

PATIENT
  Age: 50 Year
  Sex: Male

DRUGS (2)
  1. DEPO-MEDROL [Suspect]
     Indication: SYNOVIAL CYST
     Dosage: ADMINISTERED 3 TIMES. DOSE 1-2 ML
     Dates: start: 20091117, end: 20100119
  2. XYLOCAINE [Concomitant]
     Indication: SYNOVIAL CYST
     Dosage: DOSE: 1-2 ML, ADMINISTERED 3 TIMES
     Dates: start: 20091117, end: 20100119

REACTIONS (4)
  - Off label use [Recovered/Resolved]
  - Arthropathy [Recovered/Resolved]
  - Osteoarthritis [Not Recovered/Not Resolved]
  - Pain [Recovered/Resolved]
